FAERS Safety Report 7956165-8 (Version None)
Quarter: 2011Q4

REPORT INFORMATION
  Report Type: 
  Country: None (occurrence: None)
  Receive Date: 20111205
  Receipt Date: 20111124
  Transmission Date: 20120403
  Serious: Yes (Life-Threatening)
  Sender: FDA-Public Use
  Company Number: CA-JNJFOC-20111110179

PATIENT
  Sex: Male
  Weight: 66.2 kg

DRUGS (7)
  1. PERCOCET [Concomitant]
     Route: 065
  2. T4 [Concomitant]
     Route: 065
  3. SEROQUEL [Concomitant]
     Route: 065
  4. FOLIC ACID [Concomitant]
     Route: 065
  5. ASACOL [Concomitant]
     Route: 065
  6. ZOPICLONE [Concomitant]
     Route: 065
  7. REMICADE [Suspect]
     Indication: ANKYLOSING SPONDYLITIS
     Route: 042
     Dates: start: 20040701

REACTIONS (4)
  - TACHYCARDIA [None]
  - SYNCOPE [None]
  - CHEST DISCOMFORT [None]
  - PALPITATIONS [None]
